FAERS Safety Report 15066909 (Version 2)
Quarter: 2018Q3

REPORT INFORMATION
  Report Type: Spontaneous
  Country: FR (occurrence: FR)
  Receive Date: 20180626
  Receipt Date: 20180715
  Transmission Date: 20181010
  Serious: Yes (Other)
  Sender: FDA-Public Use
  Company Number: PHHY2018FR027004

PATIENT
  Age: 84 Year
  Sex: Male
  Weight: 72 kg

DRUGS (9)
  1. ENTRESTO [Suspect]
     Active Substance: SACUBITRIL\VALSARTAN
     Indication: CARDIAC FAILURE
     Dosage: 1 DF (STRENGTH: 91/103 MG) BID
     Route: 048
  2. PREVISCAN [Concomitant]
     Indication: PRODUCT USED FOR UNKNOWN INDICATION
     Dosage: 0.25 DF OR 0.5 DF, IN THE EVENING
     Route: 065
     Dates: start: 20180305
  3. ENTRESTO [Suspect]
     Active Substance: SACUBITRIL\VALSARTAN
     Dosage: 1 DF, BID MORNING AND EVENING (STRENGTH: 97/103 MG)
     Route: 048
     Dates: start: 20180310
  4. LASILIX [Concomitant]
     Active Substance: FUROSEMIDE
     Dosage: (? DF IN THE MORNING)
     Route: 048
  5. LASILIX [Concomitant]
     Active Substance: FUROSEMIDE
     Indication: PRODUCT USED FOR UNKNOWN INDICATION
     Dosage: 500 MG, (0.5 DF MORNING 0.25 DF NOON)
     Route: 048
     Dates: start: 20180305
  6. BISOCE [Concomitant]
     Active Substance: BISOPROLOL
     Indication: PRODUCT USED FOR UNKNOWN INDICATION
     Dosage: 5 MG, QD
     Route: 065
     Dates: start: 20180305
  7. ENTRESTO [Suspect]
     Active Substance: SACUBITRIL\VALSARTAN
     Indication: ISCHAEMIC CARDIOMYOPATHY
     Dosage: 2 DF, BID  MORNING AND EVENING (STRENGHT: 49/51 MG)
     Route: 065
     Dates: start: 20180305, end: 20180308
  8. ENTRESTO [Suspect]
     Active Substance: SACUBITRIL\VALSARTAN
     Dosage: 2 DF QD (STRENGTH: 97/103 MG)
     Route: 065
     Dates: start: 20180309, end: 20180309
  9. ATORVASTATIN [Concomitant]
     Active Substance: ATORVASTATIN
     Indication: PRODUCT USED FOR UNKNOWN INDICATION
     Dosage: 10 MG, QD
     Route: 065
     Dates: start: 20180305

REACTIONS (16)
  - Neutrophil count increased [Unknown]
  - Blood creatinine increased [Unknown]
  - Medication error [Recovered/Resolved]
  - Blood albumin decreased [Unknown]
  - Haemoglobin decreased [Unknown]
  - Mean cell haemoglobin concentration decreased [Unknown]
  - White blood cell count increased [Unknown]
  - Lymphocyte count decreased [Unknown]
  - Mean cell volume increased [Unknown]
  - Hypotension [Not Recovered/Not Resolved]
  - Blood sodium increased [Unknown]
  - Red blood cell count decreased [Unknown]
  - Drug prescribing error [Recovered/Resolved]
  - Overdose [Unknown]
  - C-reactive protein increased [Unknown]
  - Haematocrit decreased [Unknown]

NARRATIVE: CASE EVENT DATE: 20180305
